FAERS Safety Report 6355288-7 (Version None)
Quarter: 2009Q3

REPORT INFORMATION
  Report Type: 
  Country: None (occurrence: None)
  Receive Date: 20090914
  Receipt Date: 20090902
  Transmission Date: 20100115
  Serious: Yes (Other)
  Sender: FDA-Public Use
  Company Number: US-PFIZER INC-2009264137

PATIENT
  Sex: Female
  Weight: 49.887 kg

DRUGS (10)
  1. DETROL LA [Suspect]
     Indication: HYPERTONIC BLADDER
     Dosage: 2 MG, 1X/DAY
     Dates: start: 20090831
  2. MACRODANTIN [Suspect]
  3. INVEGA [Suspect]
  4. WARFARIN SODIUM [Concomitant]
     Dosage: UNK
  5. COREG [Concomitant]
     Dosage: 25 MG, UNK
  6. K-DUR [Concomitant]
     Dosage: UNK
  7. CARDIZEM [Concomitant]
     Dosage: 30 MG, UNK
  8. LANOXIN [Concomitant]
     Dosage: 125 MG, UNK
  9. PRILOSEC [Concomitant]
     Dosage: 30 MG, UNK
  10. AMIODARONE [Concomitant]
     Dosage: 200 MG, UNK

REACTIONS (3)
  - COORDINATION ABNORMAL [None]
  - FEELING ABNORMAL [None]
  - NOCTURIA [None]
